FAERS Safety Report 19560700 (Version 1)
Quarter: 2021Q3

REPORT INFORMATION
  Report Type: Spontaneous
  Country: US (occurrence: US)
  Receive Date: 20210715
  Receipt Date: 20210715
  Transmission Date: 20211014
  Serious: No
  Sender: FDA-Public Use
  Company Number: US-TITAN PHARMACEUTICALS-2020TAN00044

PATIENT
  Age: 29 Year
  Sex: Female
  Weight: 69.4 kg

DRUGS (11)
  1. NICOTINE STEP 3 [Concomitant]
  2. ZOFRAN [Concomitant]
     Active Substance: ONDANSETRON HYDROCHLORIDE
  3. PROBUPHINE [Suspect]
     Active Substance: BUPRENORPHINE HYDROCHLORIDE
     Indication: DRUG USE DISORDER
     Dosage: UNK
     Dates: start: 20200702
  4. KLONOPIN [Concomitant]
     Active Substance: CLONAZEPAM
  5. IBUPROFEN. [Concomitant]
     Active Substance: IBUPROFEN
  6. PROBUPHINE [Suspect]
     Active Substance: BUPRENORPHINE HYDROCHLORIDE
     Indication: DRUG DEPENDENCE
     Dosage: 4 RODS
     Dates: start: 20191010
  7. TRAMADOL. [Concomitant]
     Active Substance: TRAMADOL
  8. GABAPENTIN. [Concomitant]
     Active Substance: GABAPENTIN
  9. ALBUTEROL. [Concomitant]
     Active Substance: ALBUTEROL
     Dosage: UNK
  10. FLUOXETINE [Concomitant]
     Active Substance: FLUOXETINE HYDROCHLORIDE
  11. BUSPIRONE [Concomitant]
     Active Substance: BUSPIRONE HYDROCHLORIDE

REACTIONS (2)
  - Drug withdrawal syndrome [Recovered/Resolved]
  - Drug screen negative [Recovered/Resolved]

NARRATIVE: CASE EVENT DATE: 202003
